FAERS Safety Report 19814897 (Version 1)
Quarter: 2021Q3

REPORT INFORMATION
  Report Type: Spontaneous
  Country: US (occurrence: US)
  Receive Date: 20210907
  Receipt Date: 20210907
  Transmission Date: 20211014
  Serious: No
  Sender: FDA-Public Use
  Company Number: None

PATIENT
  Age: 60 Year
  Sex: Female

DRUGS (1)
  1. REMICADE [Suspect]
     Active Substance: INFLIXIMAB
     Indication: CROHN^S DISEASE
     Dosage: ?          OTHER STRENGTH:100MG/VL;OTHER FREQUENCY:EVERY 8 WEEKS;?
     Route: 042
     Dates: start: 20210310

REACTIONS (6)
  - Hypersensitivity [None]
  - Pericardial effusion [None]
  - Therapy cessation [None]
  - Dyspnoea [None]
  - Peripheral swelling [None]
  - Blood creatinine increased [None]

NARRATIVE: CASE EVENT DATE: 202107
